FAERS Safety Report 4592273-X (Version None)
Quarter: 2005Q1

REPORT INFORMATION
  Report Type: 
  Country: None (occurrence: None)
  Receive Date: 20050228
  Receipt Date: 20041111
  Transmission Date: 20050727
  Serious: No
  Sender: FDA-Public Use
  Company Number: US-BRISTOL-MYERS SQUIBB COMPANY-12764189

PATIENT
  Age: 45 Year
  Sex: Female

DRUGS (6)
  1. ABILIFY [Suspect]
     Dosage: INITIAL TX STARTED IN FEB-03. EXACT DATES AND IF TX CONTINUES WAS NOT REPORTED.
     Route: 048
  2. LAMICTAL [Concomitant]
  3. DEPAKOTE [Concomitant]
  4. GABITRIL [Concomitant]
  5. NEURONTIN [Concomitant]
  6. LORAZEPAM [Concomitant]

REACTIONS (1)
  - TARDIVE DYSKINESIA [None]
